FAERS Safety Report 5478427-9 (Version None)
Quarter: 2007Q4

REPORT INFORMATION
  Report Type: 
  Country: None (occurrence: None)
  Receive Date: 20071005
  Receipt Date: 20071002
  Transmission Date: 20080405
  Serious: Yes (Life-Threatening, Hospitalization, Disabling)
  Sender: FDA-Public Use
  Company Number: US-MERCK-0710USA00748

PATIENT
  Sex: Male

DRUGS (2)
  1. SINGULAIR [Suspect]
     Indication: ASTHMA
     Route: 048
     Dates: start: 20061001
  2. ALBUTEROL [Concomitant]
     Route: 065

REACTIONS (1)
  - ALLERGIC GRANULOMATOUS ANGIITIS [None]
